FAERS Safety Report 4839113-9 (Version None)
Quarter: 2005Q4

REPORT INFORMATION
  Report Type: 
  Country: None (occurrence: None)
  Receive Date: 20051129
  Receipt Date: 20051122
  Transmission Date: 20060501
  Serious: Yes (Other)
  Sender: FDA-Public Use
  Company Number: GB-GLAXOSMITHKLINE-B0401306A

PATIENT
  Sex: Female

DRUGS (2)
  1. ZANTAC [Suspect]
     Route: 042
     Dates: start: 20051122
  2. CONCURRENT MEDICATIONS [Concomitant]

REACTIONS (1)
  - ELECTROCARDIOGRAM QT PROLONGED [None]
